FAERS Safety Report 7190040-4 (Version None)
Quarter: 2010Q4

REPORT INFORMATION
  Report Type: 
  Country: None (occurrence: None)
  Receive Date: 20101213
  Receipt Date: 20101213
  Transmission Date: 20110411
  Serious: Yes (Other)
  Sender: FDA-Public Use
  Company Number: 1022556-2010-00081

PATIENT
  Sex: Male

DRUGS (1)
  1. CORTIZONE 10 CREME - GENERIC [Suspect]
     Indication: SELF-MEDICATION
     Dosage: TOPICAL
     Route: 061

REACTIONS (3)
  - BONE PAIN [None]
  - CUSHING'S SYNDROME [None]
  - EPIDURAL LIPOMATOSIS [None]
